FAERS Safety Report 9786218 (Version 3)
Quarter: 2014Q1

REPORT INFORMATION
  Report Type: Spontaneous
  Country: IT (occurrence: IT)
  Receive Date: 20131227
  Receipt Date: 20140223
  Transmission Date: 20141002
  Serious: Yes (Other)
  Sender: FDA-Public Use
  Company Number: IT-TEVA-452502ISR

PATIENT
  Age: 81 Year
  Sex: Male

DRUGS (10)
  1. ATORVASTATIN [Suspect]
     Indication: PRODUCT USED FOR UNKNOWN INDICATION
     Dosage: 20 MILLIGRAM DAILY;
     Route: 048
     Dates: end: 20131205
  2. CARDIOASPIRIN - 100 MG COMPRESSE GASTRORESISTENTI [Concomitant]
     Dosage: GASTRO-RESISTANT TABLET
  3. FOLINA [Concomitant]
  4. OLANZAPINE [Concomitant]
  5. ALFUZOSIN HYDROCHLORIDE [Concomitant]
  6. MONTELUKAST [Concomitant]
  7. GABAPENTIN [Concomitant]
  8. POTASSIUM CANRENOATE [Concomitant]
  9. MELATONINA [Concomitant]
  10. CITICOOS [Concomitant]

REACTIONS (2)
  - Rhabdomyolysis [Recovered/Resolved]
  - Fall [Recovering/Resolving]
